FAERS Safety Report 6182844-1 (Version None)
Quarter: 2009Q2

REPORT INFORMATION
  Report Type: 
  Country: None (occurrence: None)
  Receive Date: 20090507
  Receipt Date: 20090427
  Transmission Date: 20091009
  Serious: Yes (Hospitalization)
  Sender: FDA-Public Use
  Company Number: CA-WYE-H09130709

PATIENT
  Age: 40 Year
  Sex: Female

DRUGS (1)
  1. ADVIL EXTRA STRENGTH [Suspect]
     Indication: BACK PAIN
     Dosage: 1 TO 2 CAPLETS AS NEEDED
     Route: 048
     Dates: start: 19930501, end: 20081130

REACTIONS (1)
  - PANCREATITIS CHRONIC [None]
